FAERS Safety Report 6183952-1 (Version None)
Quarter: 2009Q2

REPORT INFORMATION
  Report Type: 
  Country: None (occurrence: None)
  Receive Date: 20090508
  Receipt Date: 20090506
  Transmission Date: 20091009
  Serious: No
  Sender: FDA-Public Use
  Company Number: US-B.I. PHARMACEUTICALS,INC./RIDGEFIELD-2009-BP-03658BP

PATIENT
  Sex: Female

DRUGS (11)
  1. SPIRIVA [Suspect]
     Indication: CHRONIC OBSTRUCTIVE PULMONARY DISEASE
     Dosage: 18MCG
     Route: 055
     Dates: start: 20070101
  2. SPIRIVA [Suspect]
     Indication: BRONCHOSPASM
  3. REGLAN [Concomitant]
     Indication: HIATUS HERNIA
     Route: 048
  4. AVAPRO [Concomitant]
     Indication: CARDIAC DISORDER
     Route: 048
  5. PLAVIX [Concomitant]
     Indication: CARDIAC DISORDER
     Route: 048
  6. GLUCOTROL [Concomitant]
     Indication: DIABETES MELLITUS
     Route: 048
  7. TOPROL-XL [Concomitant]
     Indication: HYPERTENSION
     Route: 048
  8. ALBUTEROL [Concomitant]
     Indication: CHRONIC OBSTRUCTIVE PULMONARY DISEASE
     Route: 055
  9. LIPITOR [Concomitant]
  10. LYRICA [Concomitant]
  11. GLUCOPHAGE [Concomitant]

REACTIONS (1)
  - DYSPNOEA [None]
